FAERS Safety Report 16388735 (Version 1)
Quarter: 2019Q2

REPORT INFORMATION
  Report Type: Spontaneous
  Country: US (occurrence: US)
  Receive Date: 20190604
  Receipt Date: 20190604
  Transmission Date: 20190711
  Serious: No
  Sender: FDA-Public Use
  Company Number: US-JNJFOC-20190535581

PATIENT
  Sex: Male

DRUGS (1)
  1. IMODIUM [Suspect]
     Active Substance: LOPERAMIDE HYDROCHLORIDE
     Indication: FREQUENT BOWEL MOVEMENTS
     Dosage: 10 PILLS A DAY
     Route: 065

REACTIONS (1)
  - Overdose [Unknown]
